FAERS Safety Report 16912683 (Version 1)
Quarter: 2019Q4

REPORT INFORMATION
  Report Type: Report from Study
  Country: IL (occurrence: IL)
  Receive Date: 20191014
  Receipt Date: 20191014
  Transmission Date: 20200122
  Serious: Yes (Hospitalization)
  Sender: FDA-Public Use
  Company Number: IL-KARYOPHARM-2016KPT000463

PATIENT
  Age: 83 Year
  Sex: Male
  Weight: 65 kg

DRUGS (4)
  1. CIRCADIN [Concomitant]
     Active Substance: MELATONIN
     Dosage: 2 MG, UNK
     Route: 048
  2. CYMBALTA [Concomitant]
     Active Substance: DULOXETINE HYDROCHLORIDE
     Dosage: 30 ML, UNK
     Route: 048
  3. SELINEXOR [Suspect]
     Active Substance: SELINEXOR
     Indication: DIFFUSE LARGE B-CELL LYMPHOMA
     Dosage: 100 MG, TWICE WEEKLY
     Route: 048
     Dates: start: 20160627, end: 20160906
  4. NORVASC [Concomitant]
     Active Substance: AMLODIPINE BESYLATE
     Dosage: 10 MG, UNK
     Route: 048

REACTIONS (2)
  - Presyncope [Recovered/Resolved]
  - Hyponatraemia [Recovered/Resolved]

NARRATIVE: CASE EVENT DATE: 20160907
